FAERS Safety Report 8113311-3 (Version None)
Quarter: 2012Q1

REPORT INFORMATION
  Report Type: 
  Country: None (occurrence: None)
  Receive Date: 20120203
  Receipt Date: 20120126
  Transmission Date: 20120608
  Serious: Yes (Hospitalization)
  Sender: FDA-Public Use
  Company Number: PHHY2011DE95642

PATIENT
  Age: 11 Year

DRUGS (1)
  1. METHERGINE [Suspect]
     Dosage: 0.375 MG, ONCE
     Route: 048
     Dates: start: 20030329, end: 20030329

REACTIONS (1)
  - ACCIDENTAL DRUG INTAKE BY CHILD [None]
